FAERS Safety Report 4338013-0 (Version None)
Quarter: 2004Q2

REPORT INFORMATION
  Report Type: 
  Country: None (occurrence: None)
  Receive Date: 20040407
  Receipt Date: 20040317
  Transmission Date: 20050107
  Serious: Yes (Hospitalization)
  Sender: FDA-Public Use
  Company Number: EWC040338538

PATIENT
  Age: 31 Year
  Sex: Female

DRUGS (2)
  1. HUMULIN R [Suspect]
     Indication: DIABETES MELLITUS
     Dosage: 8 IU DAY
     Dates: start: 20030301, end: 20040304
  2. HUMULIN N [Suspect]
     Indication: DIABETES MELLITUS
     Dosage: 10 IU DAY
     Dates: start: 20030301, end: 20040304

REACTIONS (1)
  - URTICARIA [None]
